FAERS Safety Report 23810852 (Version 1)
Quarter: 2024Q2

REPORT INFORMATION
  Report Type: Spontaneous
  Country: CN (occurrence: None)
  Receive Date: 20240502
  Receipt Date: 20240502
  Transmission Date: 20240716
  Serious: Yes (Other)
  Sender: FDA-Public Use
  Company Number: 2024A101141

PATIENT
  Age: 2841 Week
  Sex: Male

DRUGS (1)
  1. OSIMERTINIB MESYLATE [Suspect]
     Active Substance: OSIMERTINIB MESYLATE
     Indication: Lung neoplasm malignant
     Route: 048
     Dates: start: 20240329

REACTIONS (1)
  - Drug-induced liver injury [Recovering/Resolving]

NARRATIVE: CASE EVENT DATE: 20240404
